FAERS Safety Report 8224359-2 (Version None)
Quarter: 2012Q1

REPORT INFORMATION
  Report Type: 
  Country: None (occurrence: None)
  Receive Date: 20120319
  Receipt Date: 20120309
  Transmission Date: 20120608
  Serious: Yes (Other)
  Sender: FDA-Public Use
  Company Number: DKLU1077593

PATIENT
  Age: 48 Year
  Sex: Female

DRUGS (1)
  1. SABRIL [Suspect]
     Indication: CONVULSION
     Dosage: 2 IN 1 D, ORAL
     Route: 048
     Dates: start: 20120101

REACTIONS (1)
  - GRAND MAL CONVULSION [None]
